FAERS Safety Report 8947061 (Version 1)
Quarter: 2012Q4

REPORT INFORMATION
  Report Type: 
  Country: US (occurrence: US)
  Receive Date: 20121205
  Receipt Date: 20121205
  Transmission Date: 20130627
  Serious: Yes (Other)
  Sender: FDA-Public Use
  Company Number: US-PFIZER INC-2012305116

PATIENT
  Age: 52 Year
  Sex: Male
  Weight: 105 kg

DRUGS (5)
  1. LYRICA [Suspect]
     Indication: PAIN
     Dosage: 150 mg, 4x/day
     Route: 048
  2. LYRICA [Suspect]
     Dosage: UNK
     Route: 048
  3. ESOMEPRAZOLE MAGNESIUM [Concomitant]
     Indication: GASTROESOPHAGEAL REFLUX DISEASE
     Dosage: UNK, daily in morning
  4. RANITIDINE HYDROCHLORIDE [Concomitant]
     Indication: GASTROESOPHAGEAL REFLUX DISEASE
     Dosage: UNK, daily in night
  5. POLYETHYLENE GLYCOL [Concomitant]
     Indication: LAXATIVE SUPPORTIVE CARE
     Dosage: UNK,daily

REACTIONS (4)
  - Weight increased [Unknown]
  - Oedema peripheral [Not Recovered/Not Resolved]
  - Joint swelling [Not Recovered/Not Resolved]
  - Oedema [Not Recovered/Not Resolved]
